FAERS Safety Report 24820882 (Version 1)
Quarter: 2025Q1

REPORT INFORMATION
  Report Type: Spontaneous
  Country: US (occurrence: US)
  Receive Date: 20250108
  Receipt Date: 20250108
  Transmission Date: 20250409
  Serious: No
  Sender: SANOFI AVENTIS
  Company Number: US-SA-2025SA003999

PATIENT
  Age: 20 Year
  Sex: Male
  Weight: 68 kg

DRUGS (8)
  1. DUPIXENT [Suspect]
     Active Substance: DUPILUMAB
     Indication: Eosinophilic oesophagitis
     Dosage: 300 MG, QW
     Route: 058
     Dates: start: 20241008, end: 20241231
  2. EPINEPHRINE [Concomitant]
     Active Substance: EPINEPHRINE
  3. PYRITHIONE ZINC [Concomitant]
     Active Substance: PYRITHIONE ZINC
  4. VITAMIN D3 [Concomitant]
     Active Substance: CHOLECALCIFEROL
  5. DIAZEPAM [Concomitant]
     Active Substance: DIAZEPAM
  6. CHILDRENS TYLENOL [Concomitant]
     Active Substance: ACETAMINOPHEN
  7. CHILDRENS MOTRIN [Concomitant]
     Active Substance: IBUPROFEN
  8. CHILDREN^S BENADRYL ALLERGY + SINUS [Concomitant]

REACTIONS (3)
  - Upper respiratory tract infection [Unknown]
  - Pyrexia [Unknown]
  - Decreased appetite [Unknown]

NARRATIVE: CASE EVENT DATE: 20240101
